FAERS Safety Report 9285654 (Version 2)
Quarter: 2016Q2

REPORT INFORMATION
  Report Type: Report from Study
  Country: US (occurrence: US)
  Receive Date: 20130513
  Receipt Date: 20160609
  Transmission Date: 20160815
  Serious: Yes (Hospitalization, Other)
  Sender: FDA-Public Use
  Company Number: US-ROCHE-1223610

PATIENT
  Age: 10 Year
  Sex: Male
  Weight: 35.8 kg

DRUGS (4)
  1. ULTRASE [Concomitant]
     Active Substance: PANCRELIPASE
  2. NUTROPIN AQ [Suspect]
     Active Substance: SOMATROPIN
     Indication: GROWTH RETARDATION
     Route: 058
  3. NUTROPIN AQ [Suspect]
     Active Substance: SOMATROPIN
     Route: 058
  4. NUTROPIN AQ [Suspect]
     Active Substance: SOMATROPIN
     Route: 058

REACTIONS (10)
  - Headache [Unknown]
  - Appendicitis [Unknown]
  - Pain in extremity [Unknown]
  - Hepatic steatosis [Unknown]
  - Fatigue [Unknown]
  - Migraine [Unknown]
  - Hypoglycaemia [Unknown]
  - Abdominal pain [Unknown]
  - Aggression [Unknown]
  - Poor dental condition [Unknown]

NARRATIVE: CASE EVENT DATE: 2010
